FAERS Safety Report 4740530-6 (Version None)
Quarter: 2005Q3

REPORT INFORMATION
  Report Type: 
  Country: None (occurrence: None)
  Receive Date: 20050809
  Receipt Date: 20050804
  Transmission Date: 20060218
  Serious: Yes (Other)
  Sender: FDA-Public Use
  Company Number: 005367

PATIENT
  Age: 56 Year
  Sex: Female

DRUGS (6)
  1. MEDROXYPROGESTERONE ACETATE [Suspect]
     Dosage: ORAL
     Route: 048
     Dates: start: 19991001, end: 19991101
  2. ESTRATEST H.S. [Suspect]
     Dosage: ORAL
     Route: 048
     Dates: start: 19991001, end: 19991101
  3. PREMARIN [Suspect]
     Dosage: ORAL
     Route: 048
     Dates: start: 19930101, end: 19960101
  4. PROVERA [Suspect]
     Dosage: ORAL
     Route: 048
     Dates: start: 19930101, end: 19960101
  5. PREMPRO [Suspect]
     Dosage: ORAL
     Route: 048
     Dates: start: 19960101, end: 20020801
  6. ACTIVELLA [Suspect]
     Dosage: ORAL
     Route: 048
     Dates: start: 20020901, end: 20030601

REACTIONS (1)
  - BREAST CANCER FEMALE [None]
